FAERS Safety Report 18963414 (Version 1)
Quarter: 2021Q1

REPORT INFORMATION
  Report Type: Other
  Country: US (occurrence: US)
  Receive Date: 20210303
  Receipt Date: 20210303
  Transmission Date: 20210420
  Serious: No
  Sender: FDA-Public Use
  Company Number: US-NOSTRUM LABORATORIES, INC.-2107526

PATIENT
  Age: 75 Year
  Sex: Female

DRUGS (2)
  1. BOSENTAN. [Concomitant]
     Active Substance: BOSENTAN
     Route: 048
  2. MORPHINE SULFATE. [Suspect]
     Active Substance: MORPHINE SULFATE
     Indication: PRODUCT USED FOR UNKNOWN INDICATION
     Route: 065

REACTIONS (2)
  - Urticaria [Recovered/Resolved]
  - Swollen tongue [Recovered/Resolved]
